FAERS Safety Report 11473603 (Version 1)
Quarter: 2015Q3

REPORT INFORMATION
  Report Type: Spontaneous
  Country: US (occurrence: None)
  Receive Date: 20150908
  Receipt Date: 20150908
  Transmission Date: 20151125
  Serious: Yes (Hospitalization)
  Sender: FDA-Public Use
  Company Number: None

PATIENT
  Age: 11 Year
  Sex: Male
  Weight: 65.6 kg

DRUGS (6)
  1. PREDNISONE. [Suspect]
     Active Substance: PREDNISONE
     Dates: end: 20150827
  2. VINCRISTINE SULFATE. [Suspect]
     Active Substance: VINCRISTINE SULFATE
     Dates: end: 20150821
  3. DAUNORUBICIN [Suspect]
     Active Substance: DAUNORUBICIN
     Dates: end: 20150821
  4. ONCASPAR [Suspect]
     Active Substance: PEGASPARGASE
     Dates: end: 20150803
  5. CYTARABINE. [Suspect]
     Active Substance: CYTARABINE
     Dates: end: 20150730
  6. METHOTREXATE [Suspect]
     Active Substance: METHOTREXATE
     Dates: end: 20150828

REACTIONS (10)
  - Catheter site infection [None]
  - Pulmonary oedema [None]
  - Wound infection bacterial [None]
  - Urine output decreased [None]
  - Blood pressure decreased [None]
  - Alpha haemolytic streptococcal infection [None]
  - Antibiotic level above therapeutic [None]
  - Oedema peripheral [None]
  - Weight increased [None]
  - Blood creatinine increased [None]

NARRATIVE: CASE EVENT DATE: 20150830
